FAERS Safety Report 25073470 (Version 1)
Quarter: 2025Q1

REPORT INFORMATION
  Report Type: Spontaneous
  Country: IN (occurrence: IN)
  Receive Date: 20250313
  Receipt Date: 20250313
  Transmission Date: 20250409
  Serious: Yes (Life-Threatening, Hospitalization, Other)
  Sender: TORRENT PHARMA INC.
  Company Number: IN-MLMSERVICE-20250226-PI430584-00050-1

PATIENT
  Age: 42 Year
  Sex: Female

DRUGS (2)
  1. AMLODIPINE [Suspect]
     Active Substance: AMLODIPINE BESYLATE
     Indication: Product used for unknown indication
     Route: 065
  2. GLIMEPIRIDE [Suspect]
     Active Substance: GLIMEPIRIDE
     Indication: Product used for unknown indication
     Route: 048

REACTIONS (5)
  - Shock [Recovered/Resolved]
  - Blood potassium abnormal [Recovered/Resolved]
  - Blood calcium abnormal [Recovered/Resolved]
  - Blood glucose increased [Recovered/Resolved]
  - Intentional overdose [Recovered/Resolved]
